FAERS Safety Report 10209291 (Version 1)
Quarter: 2014Q2

REPORT INFORMATION
  Report Type: Report from Study
  Country: AR (occurrence: AR)
  Receive Date: 20140530
  Receipt Date: 20140530
  Transmission Date: 20141212
  Serious: Yes (Other)
  Sender: FDA-Public Use
  Company Number: PHHY2014AR066691

PATIENT
  Age: 82 Year
  Sex: Female

DRUGS (4)
  1. EXFORGE [Suspect]
     Indication: ARRHYTHMIA
     Dosage: 1 DF (160/5 MG), DAILY
     Route: 048
  2. EXFORGE [Suspect]
     Indication: HYPERTENSION
  3. DIOVAN [Suspect]
     Indication: HYPERTENSION
     Dosage: 1 DF (160 MG), DAILY
     Route: 048
  4. DIOVAN [Suspect]
     Indication: ARRHYTHMIA
     Dosage: 2 DF (160 MG), DAILY
     Route: 048

REACTIONS (4)
  - Cystitis [Not Recovered/Not Resolved]
  - Bladder dilatation [Not Recovered/Not Resolved]
  - Blood pressure systolic increased [Recovering/Resolving]
  - Memory impairment [Not Recovered/Not Resolved]
